FAERS Safety Report 8574643 (Version 5)
Quarter: 2012Q4

REPORT INFORMATION
  Report Type: 
  Country: US (occurrence: US)
  Receive Date: 20120522
  Receipt Date: 20121024
  Transmission Date: 20130627
  Serious: Yes (Hospitalization)
  Sender: FDA-Public Use
  Company Number: US-ACTELION-A-US2012-65952

PATIENT
  Age: 64 Year
  Sex: Male

DRUGS (5)
  1. TRACLEER [Suspect]
     Indication: PULMONARY ARTERIAL HYPERTENSION
     Dosage: UNK
     Route: 048
  2. ADCIRCA [Concomitant]
  3. REMODULIN [Concomitant]
  4. HEPARIN [Concomitant]
  5. CIALIS [Concomitant]

REACTIONS (3)
  - Osteomyelitis [Not Recovered/Not Resolved]
  - Catheter placement [Unknown]
  - Infection [Unknown]
